FAERS Safety Report 14908300 (Version 1)
Quarter: 2018Q2

REPORT INFORMATION
  Report Type: Spontaneous
  Country: HR (occurrence: HR)
  Receive Date: 20180517
  Receipt Date: 20180517
  Transmission Date: 20180711
  Serious: Yes (Other)
  Sender: FDA-Public Use
  Company Number: HR-PFIZER INC-2018197941

PATIENT
  Age: 77 Year
  Sex: Male

DRUGS (1)
  1. SUTENT [Suspect]
     Active Substance: SUNITINIB MALATE
     Indication: GASTROINTESTINAL STROMAL TUMOUR
     Dosage: UNK
     Dates: start: 2018

REACTIONS (10)
  - Blood urine present [Unknown]
  - Weight decreased [Unknown]
  - Anal incontinence [Unknown]
  - Dysstasia [Unknown]
  - Rectal haemorrhage [Unknown]
  - Musculoskeletal stiffness [Unknown]
  - Orchitis noninfective [Unknown]
  - Vomiting [Recovered/Resolved]
  - Body temperature increased [Unknown]
  - Decubitus ulcer [Unknown]

NARRATIVE: CASE EVENT DATE: 2018
